FAERS Safety Report 13677648 (Version 1)
Quarter: 2017Q2

REPORT INFORMATION
  Report Type: Spontaneous
  Country: US (occurrence: US)
  Receive Date: 20170620
  Receipt Date: 20170620
  Transmission Date: 20170830
  Serious: Yes (Death)
  Sender: FDA-Public Use
  Company Number: None

PATIENT
  Age: 80 Year
  Sex: Female
  Weight: 67.9 kg

DRUGS (1)
  1. SODIUM BICARBONATE. [Suspect]
     Active Substance: SODIUM BICARBONATE
     Indication: ACIDOSIS
     Route: 040
     Dates: start: 20170609, end: 20170613

REACTIONS (2)
  - Sepsis [None]
  - Product use issue [None]

NARRATIVE: CASE EVENT DATE: 20170609
